FAERS Safety Report 18970023 (Version 1)
Quarter: 2021Q1

REPORT INFORMATION
  Report Type: Spontaneous
  Country: US (occurrence: US)
  Receive Date: 20210304
  Receipt Date: 20210304
  Transmission Date: 20210420
  Serious: No
  Sender: FDA-Public Use
  Company Number: US-MYLANLABS-2021M1007572

PATIENT
  Sex: Female
  Weight: 70 kg

DRUGS (1)
  1. LEVOTHYROXINE SODIUM TABLETS, USP [Suspect]
     Active Substance: LEVOTHYROXINE SODIUM
     Indication: HYPOTHYROIDISM
     Dosage: 1 UNK, ONCE DAILY
     Route: 048

REACTIONS (11)
  - Abdominal discomfort [Recovering/Resolving]
  - Flatulence [Recovering/Resolving]
  - Feeling abnormal [Unknown]
  - Pain in extremity [Recovering/Resolving]
  - Product quality issue [Unknown]
  - Muscular dystrophy [Recovering/Resolving]
  - Mood swings [Recovering/Resolving]
  - Abdominal distension [Recovering/Resolving]
  - Headache [Recovering/Resolving]
  - Adverse event [Unknown]
  - Fatigue [Recovering/Resolving]
